FAERS Safety Report 16438772 (Version 1)
Quarter: 2019Q2

REPORT INFORMATION
  Report Type: Spontaneous
  Country: CA (occurrence: CA)
  Receive Date: 20190617
  Receipt Date: 20190617
  Transmission Date: 20190711
  Serious: Yes (Hospitalization, Other)
  Sender: FDA-Public Use
  Company Number: CA-ACCORD-132892

PATIENT
  Age: 4 Year
  Sex: Male

DRUGS (1)
  1. METHOTREXATE. [Suspect]
     Active Substance: METHOTREXATE
     Indication: B PRECURSOR TYPE ACUTE LEUKAEMIA

REACTIONS (6)
  - Cytomegalovirus infection [Recovered/Resolved]
  - Epstein-Barr virus associated lymphoproliferative disorder [Recovered/Resolved]
  - Respiratory failure [Unknown]
  - Respiratory tract infection viral [Unknown]
  - Haemophagocytic lymphohistiocytosis [Recovered/Resolved]
  - Acute respiratory distress syndrome [Unknown]
